FAERS Safety Report 4560147-6 (Version None)
Quarter: 2005Q1

REPORT INFORMATION
  Report Type: 
  Country: None (occurrence: None)
  Receive Date: 20050120
  Receipt Date: 20050120
  Transmission Date: 20050727
  Serious: Yes (Life-Threatening)
  Sender: FDA-Public Use
  Company Number: None

PATIENT
  Age: 58 Year
  Sex: Male

DRUGS (2)
  1. LISINIPRIL (GENERIC) 40 MG [Suspect]
     Indication: CORONARY ARTERY DISEASE
     Dosage: 40 MG QD PO [FEW MONTHS]
     Route: 048
     Dates: start: 20020302
  2. LISINIPRIL (GENERIC) 40 MG [Suspect]
     Indication: HYPERTENSION
     Dosage: 40 MG QD PO [FEW MONTHS]
     Route: 048
     Dates: start: 20020302

REACTIONS (4)
  - BLOOD PRESSURE INCREASED [None]
  - DYSPNOEA [None]
  - HEART RATE INCREASED [None]
  - PHARMACEUTICAL PRODUCT COMPLAINT [None]
